FAERS Safety Report 20724323 (Version 1)
Quarter: 2022Q2

REPORT INFORMATION
  Report Type: Spontaneous
  Country: CA (occurrence: CA)
  Receive Date: 20220419
  Receipt Date: 20220419
  Transmission Date: 20220721
  Serious: Yes (Other)
  Sender: FDA-Public Use
  Company Number: CA-SA-SAC20220414001514

PATIENT
  Sex: Female

DRUGS (14)
  1. ZOPICLONE [Suspect]
     Active Substance: ZOPICLONE
  2. ACETAMINOPHEN [Suspect]
     Active Substance: ACETAMINOPHEN
  3. ALUMINUM HYDROXIDE [Suspect]
     Active Substance: ALUMINUM HYDROXIDE
  4. AMLODIPINE [Suspect]
     Active Substance: AMLODIPINE BESYLATE
  5. ARIPIPRAZOLE [Suspect]
     Active Substance: ARIPIPRAZOLE
  6. CHOLECALCIFEROL [Suspect]
     Active Substance: CHOLECALCIFEROL
  7. CLOTRIMAZOLE [Suspect]
     Active Substance: CLOTRIMAZOLE
  8. CLOZAPINE [Suspect]
     Active Substance: CLOZAPINE
  9. DIVIGEL [Suspect]
     Active Substance: ESTRADIOL
  10. FLUMIST QUADRIVALENT [Suspect]
     Active Substance: INFLUENZA A VIRUS A/CALIFORNIA/7/2009 (H1N1) LIVE(ATTENUATED) ANTIGEN\INFLUENZA A VIRUS A/TEXAS/50/2
  11. LEVOTHYROXINE SODIUM [Suspect]
     Active Substance: LEVOTHYROXINE SODIUM
  12. OLANZAPINE [Suspect]
     Active Substance: OLANZAPINE
  13. RANITIDINE HYDROCHLORIDE [Suspect]
     Active Substance: RANITIDINE HYDROCHLORIDE
  14. VALPROIC ACID [Suspect]
     Active Substance: VALPROIC ACID

REACTIONS (5)
  - Schizoaffective disorder [Unknown]
  - Electrocardiogram QT prolonged [Unknown]
  - Drug interaction [Unknown]
  - Drug level increased [Unknown]
  - Product use issue [Unknown]
